FAERS Safety Report 17010220 (Version 1)
Quarter: 2019Q4

REPORT INFORMATION
  Report Type: Report from Study
  Country: US (occurrence: US)
  Receive Date: 20191108
  Receipt Date: 20191108
  Transmission Date: 20200122
  Serious: Yes (Other)
  Sender: FDA-Public Use
  Company Number: US-ROCHE-1565808

PATIENT
  Sex: Male

DRUGS (3)
  1. PREDNISONE. [Concomitant]
     Active Substance: PREDNISONE
     Dosage: FOR 1 MONTH IN JUL/2014
     Route: 065
  2. RITUXIMAB. [Suspect]
     Active Substance: RITUXIMAB
     Indication: MYASTHENIA GRAVIS
     Dosage: ROUTE AND FORM AS PER PROTOCOL?TO BE ADMINISTERED WEEKLY CONSECUTIVELY FOR FOUR WEEKS AND THEN REPEA
     Route: 042
  3. PREDNISONE. [Concomitant]
     Active Substance: PREDNISONE
     Route: 065

REACTIONS (1)
  - Psychotic disorder [Not Recovered/Not Resolved]

NARRATIVE: CASE EVENT DATE: 20150314
